FAERS Safety Report 9261715 (Version 1)
Quarter: 2013Q2

REPORT INFORMATION
  Report Type: Spontaneous
  Country: US (occurrence: US)
  Receive Date: 20130429
  Receipt Date: 20130429
  Transmission Date: 20140414
  Serious: Yes (Hospitalization)
  Sender: FDA-Public Use
  Company Number: US-ROXANE LABORATORIES, INC.-2013-RO-00649RO

PATIENT
  Age: 55 Year
  Sex: Male
  Weight: 125 kg

DRUGS (3)
  1. PREDNISONE [Suspect]
     Indication: IDIOPATHIC PULMONARY FIBROSIS
  2. OXYGEN [Concomitant]
     Indication: IDIOPATHIC PULMONARY FIBROSIS
     Dates: start: 20130423
  3. AZATHIOPRINE [Concomitant]
     Indication: IDIOPATHIC PULMONARY FIBROSIS

REACTIONS (1)
  - Idiopathic pulmonary fibrosis [Unknown]
